FAERS Safety Report 23353285 (Version 1)
Quarter: 2023Q4

REPORT INFORMATION
  Report Type: Spontaneous
  Country: PL (occurrence: PL)
  Receive Date: 20231231
  Receipt Date: 20231231
  Transmission Date: 20240109
  Serious: Yes (Other)
  Sender: FDA-Public Use
  Company Number: PL-SUN PHARMACEUTICAL INDUSTRIES LTD-2023RR-423615

PATIENT
  Age: 36 Year
  Sex: Female

DRUGS (6)
  1. IBUPROFEN [Suspect]
     Active Substance: IBUPROFEN
     Indication: Migraine
     Dosage: 20 DOSAGE FORM (400 MILIGRAM)
     Route: 065
  2. PROPRANOLOL [Suspect]
     Active Substance: PROPRANOLOL HYDROCHLORIDE
     Indication: Migraine
     Dosage: FEW WEEKS
     Route: 065
  3. SUMATRIPTAN [Suspect]
     Active Substance: SUMATRIPTAN
     Indication: Migraine
     Dosage: 40 DOSAGE FORM (100 MILIGRAM)
     Route: 065
  4. SUMATRIPTAN [Suspect]
     Active Substance: SUMATRIPTAN
     Dosage: 100 MILLIGRAM (SEVERAL TIMES A MONTH)
     Route: 065
  5. TOPIRAMATE [Suspect]
     Active Substance: TOPIRAMATE
     Indication: Migraine
     Dosage: 100 MILLIGRAM, IN 2 DIVIDED DOSES
     Route: 065
  6. AMITRIPTYLINE [Suspect]
     Active Substance: AMITRIPTYLINE
     Indication: Migraine
     Dosage: 150 MILLIGRAM (DIVIDED IN 2 DOSE)
     Route: 065

REACTIONS (13)
  - Thrombocytopenia [Unknown]
  - Agranulocytosis [Unknown]
  - Leukopenia [Unknown]
  - Weight decreased [Unknown]
  - Decreased appetite [Unknown]
  - Syncope [Unknown]
  - Disease recurrence [Unknown]
  - Bradycardia [Unknown]
  - Disturbance in attention [Unknown]
  - Somnolence [Unknown]
  - Depressed mood [Unknown]
  - Therapeutic product effect incomplete [Unknown]
  - Drug abuse [Unknown]
